FAERS Safety Report 10034966 (Version 1)
Quarter: 2014Q1

REPORT INFORMATION
  Report Type: Spontaneous
  Country: US (occurrence: None)
  Receive Date: 20140306
  Receipt Date: 20140306
  Transmission Date: 20141002
  Serious: Yes (Other)
  Sender: FDA-Public Use
  Company Number: 163-21880-13124271

PATIENT
  Age: 62 Year
  Sex: Male
  Weight: 113.4 kg

DRUGS (18)
  1. REVLIMID (LENALIDOMIDE) (15 MILLIGRAM, CAPSULES) [Suspect]
     Indication: PLASMA CELL MYELOMA
     Dosage: 15 MG, 21 AND 28 D, PO,  10 / 2012 - UNKNOWN THERAPY DATES
     Route: 048
     Dates: start: 201210
  2. DEXAMETHASONE [Concomitant]
  3. DOXYCYCLINE HYCLATE [Concomitant]
  4. SULFAMETHOXAZOLE AND TRIMETHOPRIM (BACTRIM) [Concomitant]
  5. ZOMETA (ZOLEDRONIC ACID) [Concomitant]
  6. SIMVASTATIN [Concomitant]
  7. ACYCLOVIR [Concomitant]
  8. ASPIRIN [Concomitant]
  9. LISINOPRIL [Concomitant]
  10. GABAPENTIN [Concomitant]
  11. VITAMIN B COMPLEX (B-KOMPLEX ^LECIVA^) [Concomitant]
  12. LEXAPRO (ESCITALOPRAM OXALATE) [Concomitant]
  13. VITAMIN D (ERGOCALCIFEROL) [Concomitant]
  14. FISH OIL [Concomitant]
  15. OMEPRAZOLE [Concomitant]
  16. MULTIVITAMINS [Concomitant]
  17. MAGNESIUM [Concomitant]
  18. VELCADE (BORTEZOMIB) [Concomitant]

REACTIONS (1)
  - Laboratory test abnormal [None]
